FAERS Safety Report 7965517-1 (Version None)
Quarter: 2011Q4

REPORT INFORMATION
  Report Type: 
  Country: None (occurrence: None)
  Receive Date: 20111208
  Receipt Date: 20111201
  Transmission Date: 20120403
  Serious: Yes (Other)
  Sender: FDA-Public Use
  Company Number: DE-B.I. PHARMACEUTICALS,INC./RIDGEFIELD-2011-DE-06439DE

PATIENT
  Sex: Female
  Weight: 70 kg

DRUGS (4)
  1. PRADAXA [Suspect]
     Indication: ATRIAL FIBRILLATION
     Dosage: 220 MG
     Route: 048
     Dates: start: 20111107, end: 20111116
  2. DIABETES MEDICATION [Concomitant]
     Indication: DIABETES MELLITUS
  3. CORONARY HEART DISEASE  MEDICATION [Concomitant]
     Indication: CORONARY ARTERY DISEASE
  4. RR MEDICATION [Concomitant]
     Indication: BLOOD PRESSURE

REACTIONS (4)
  - ABDOMINAL PAIN [None]
  - URINARY TRACT INFECTION [None]
  - DERMATITIS BULLOUS [None]
  - INFLAMMATION [None]
